FAERS Safety Report 10067289 (Version 1)
Quarter: 2014Q2

REPORT INFORMATION
  Report Type: Spontaneous
  Country: US (occurrence: None)
  Receive Date: 20140407
  Receipt Date: 20140407
  Transmission Date: 20141212
  Serious: Yes (Hospitalization)
  Sender: FDA-Public Use
  Company Number: 2014P1002733

PATIENT
  Age: 34 Year
  Sex: Male

DRUGS (1)
  1. PHENYTOIN [Suspect]
     Indication: CONVULSION

REACTIONS (12)
  - Drug reaction with eosinophilia and systemic symptoms [None]
  - Bone marrow granuloma [None]
  - Convulsion [None]
  - Pyrexia [None]
  - Arthralgia [None]
  - Headache [None]
  - Oropharyngeal pain [None]
  - Blood creatinine increased [None]
  - Dyspnoea [None]
  - Tachycardia [None]
  - Systolic dysfunction [None]
  - Anaemia [None]
